FAERS Safety Report 5404032-6 (Version None)
Quarter: 2007Q3

REPORT INFORMATION
  Report Type: 
  Country: None (occurrence: None)
  Receive Date: 20070730
  Receipt Date: 20070712
  Transmission Date: 20080115
  Serious: Yes (Hospitalization)
  Sender: FDA-Public Use
  Company Number: 2007BM000082

PATIENT
  Age: 30 Year
  Sex: Female

DRUGS (6)
  1. PREDNISOLONE [Suspect]
     Indication: OBLITERATIVE BRONCHIOLITIS
     Dosage: 30 MG; QD; PO; 20 MG; QD; PO
     Route: 048
     Dates: start: 20030910, end: 20031202
  2. PREDNISOLONE [Suspect]
     Indication: OBLITERATIVE BRONCHIOLITIS
     Dosage: 30 MG; QD; PO; 20 MG; QD; PO
     Route: 048
     Dates: start: 20031202
  3. ORAPRED [Suspect]
  4. SAUROPUS ANDROGYNUS [Concomitant]
  5. THEOPHYLLINE [Concomitant]
  6. FLUTICASONE PROPIONATE [Concomitant]

REACTIONS (3)
  - ACIDOSIS [None]
  - BRONCHOPULMONARY ASPERGILLOSIS [None]
  - NO THERAPEUTIC RESPONSE [None]
